FAERS Safety Report 9205904 (Version 1)
Quarter: 2013Q2

REPORT INFORMATION
  Report Type: Spontaneous
  Country: NZ (occurrence: None)
  Receive Date: 20130401
  Receipt Date: 20130401
  Transmission Date: 20140414
  Serious: Yes (Hospitalization)
  Sender: FDA-Public Use
  Company Number: NSR_01067_2013

PATIENT
  Age: 73 Year
  Sex: Male

DRUGS (6)
  1. FLUOXETINE (FLUOXETINE) [Suspect]
     Indication: PRODUCT USED FOR UNKNOWN INDICATION
     Dosage: (DF)
  2. WARFARIN [Suspect]
     Indication: ATRIAL FIBRILLATION
     Dosage: (DF)
  3. CANDESARTAN [Concomitant]
  4. METOPROLOL [Concomitant]
  5. SIMVASTATIN [Concomitant]
  6. EZETIMIBE [Concomitant]

REACTIONS (6)
  - Back pain [None]
  - Diplegia [None]
  - Urinary retention [None]
  - Anal sphincter atony [None]
  - Spinal subdural haematoma [None]
  - Faecal incontinence [None]
